FAERS Safety Report 5669348-7 (Version None)
Quarter: 2008Q1

REPORT INFORMATION
  Report Type: 
  Country: None (occurrence: None)
  Receive Date: 20080317
  Receipt Date: 20080303
  Transmission Date: 20080703
  Serious: Yes (Hospitalization, Other)
  Sender: FDA-Public Use
  Company Number: PHHY2008JP02168

PATIENT
  Age: 39 Year
  Sex: Female

DRUGS (6)
  1. SULPIRIDE [Concomitant]
     Dosage: 150 MG/D
  2. OLANZAPINE [Concomitant]
     Dosage: 10 MG/D
  3. TEGRETOL [Suspect]
     Indication: TEMPORAL LOBE EPILEPSY
     Dosage: UNK, UNK
  4. TEGRETOL [Suspect]
     Dosage: 400MG/D
  5. TEGRETOL [Suspect]
  6. ZONISAMIDE [Suspect]
     Dosage: 300 MG/D

REACTIONS (19)
  - ABNORMAL BEHAVIOUR [None]
  - AGITATION [None]
  - ANXIETY [None]
  - ANXIETY DISORDER [None]
  - DRUG EXPOSURE DURING PREGNANCY [None]
  - DRUG LEVEL DECREASED [None]
  - EOSINOPHIL COUNT INCREASED [None]
  - EOSINOPHILIA [None]
  - INSOMNIA [None]
  - IRRITABILITY [None]
  - LACK OF SPONTANEOUS SPEECH [None]
  - LEUKOPENIA [None]
  - MENTAL IMPAIRMENT [None]
  - PSYCHOTIC DISORDER [None]
  - RESTLESSNESS [None]
  - THINKING ABNORMAL [None]
  - TONIC CLONIC MOVEMENTS [None]
  - TREATMENT NONCOMPLIANCE [None]
  - WHITE BLOOD CELL COUNT DECREASED [None]
